FAERS Safety Report 5283073-6 (Version None)
Quarter: 2007Q2

REPORT INFORMATION
  Report Type: 
  Country: None (occurrence: None)
  Receive Date: 20070402
  Receipt Date: 20070320
  Transmission Date: 20071010
  Serious: Yes (Other)
  Sender: FDA-Public Use
  Company Number: US-ELI_LILLY_AND_COMPANY-US200703004873

PATIENT
  Age: 25 Year
  Sex: Female

DRUGS (2)
  1. STRATTERA [Suspect]
     Dates: start: 20070101, end: 20070301
  2. STRATTERA [Suspect]
     Dosage: 80 UNK, UNK
     Dates: end: 20070301

REACTIONS (2)
  - DIZZINESS POSTURAL [None]
  - SYNCOPE [None]
